FAERS Safety Report 5148077-2 (Version None)
Quarter: 2006Q4

REPORT INFORMATION
  Report Type: 
  Country: None (occurrence: None)
  Receive Date: 20061106
  Receipt Date: 20061024
  Transmission Date: 20070319
  Serious: Yes (Death)
  Sender: FDA-Public Use
  Company Number: 2006097374

PATIENT
  Age: 80 Year
  Sex: Female

DRUGS (3)
  1. IRINOTECAN HCL [Suspect]
     Indication: RECTAL CANCER RECURRENT
     Dosage: 140 MG (1 IN 1 WK), INTRAVENOUS
     Route: 042
     Dates: start: 20051028, end: 20051104
  2. UFT [Suspect]
     Indication: RECTAL CANCER RECURRENT
     Dosage: 300 MG (100 MG, 5 TIMES A WEEK), ORAL
     Route: 048
     Dates: start: 20051028, end: 20051107
  3. LEUCOVORIN CALCIUM [Suspect]
     Indication: RECTAL CANCER RECURRENT
     Dosage: 75 MG (25 MG, 5 TIMES A WEEK), ORAL
     Route: 048
     Dates: start: 20051028, end: 20051104

REACTIONS (6)
  - CONDITION AGGRAVATED [None]
  - DISSEMINATED INTRAVASCULAR COAGULATION [None]
  - PANCYTOPENIA [None]
  - PNEUMONIA [None]
  - RESPIRATORY DISORDER [None]
  - STAPHYLOCOCCAL INFECTION [None]
